FAERS Safety Report 8474351-8 (Version None)
Quarter: 2012Q2

REPORT INFORMATION
  Report Type: 
  Country: None (occurrence: None)
  Receive Date: 20120628
  Receipt Date: 20110518
  Transmission Date: 20120825
  Serious: Yes (Death)
  Sender: FDA-Public Use
  Company Number: US-MYLANLABS-2011S1010471

PATIENT
  Age: 62 Year
  Sex: Female

DRUGS (19)
  1. ACETAMINOPHEN [Concomitant]
     Indication: PAIN
     Route: 048
     Dates: start: 20100616
  2. DEPAKOTE [Concomitant]
     Indication: CONVULSION
     Route: 048
     Dates: start: 20100708
  3. GUAIFENESIN [Concomitant]
     Indication: COUGH
     Route: 048
     Dates: start: 20100708
  4. CLOZAPINE [Suspect]
     Indication: SCHIZOPHRENIA
     Dosage: PATIENT USED 100MG + 25MG TABLETS TOGETHER (EACH AMOUNT UNKNOWN) FOR A TOTAL DAILY DOSE OF 300MG
     Route: 048
     Dates: start: 20100616, end: 20110513
  5. PROMETHAZINE /00033002/ [Concomitant]
     Indication: NAUSEA
     Dosage: NAUSEA AND VOMITING
     Route: 048
     Dates: start: 20101210
  6. KLONOPIN [Concomitant]
     Indication: SCHIZOPHRENIA
     Route: 048
     Dates: start: 20100616
  7. ANUCORT-HC [Concomitant]
     Indication: HAEMORRHOIDS
     Route: 054
     Dates: start: 20100616
  8. DULCOLAX [Concomitant]
     Indication: CONSTIPATION
     Route: 054
     Dates: start: 20100616
  9. ATIVAN [Concomitant]
     Indication: ANXIETY
     Route: 030
     Dates: start: 20110222
  10. ASPIRIN [Concomitant]
     Indication: ANTICOAGULANT THERAPY
     Dosage: CHEWABLE
     Route: 048
     Dates: start: 20100616
  11. ZOLOFT [Concomitant]
     Indication: DEPRESSION
     Route: 048
     Dates: start: 20100616
  12. BENADRYL [Concomitant]
     Indication: PRURITUS
     Route: 048
     Dates: start: 20110324
  13. COLACE [Concomitant]
     Indication: CONSTIPATION
     Route: 048
     Dates: start: 20110301
  14. DEXAMETHASONE SODIUM PHOSPHATE [Concomitant]
     Route: 048
     Dates: start: 20100616
  15. CLOZAPINE [Suspect]
     Dosage: PATIENT USED 100MG + 25MG TABLETS TOGETHER (EACH AMOUNT UNKNOWN) FOR A TOTAL DAILY DOSE OF 300MG
     Route: 048
     Dates: start: 20100616, end: 20110513
  16. MORPHINE SULFATE [Concomitant]
     Indication: PAIN
     Route: 048
     Dates: start: 20100616
  17. MILK OF MAGNESIA TAB [Concomitant]
     Indication: CONSTIPATION
     Route: 048
     Dates: start: 20100616
  18. DILANTIN [Concomitant]
     Indication: CONVULSION
     Route: 048
     Dates: start: 20110301
  19. MULTI-VITAMIN [Concomitant]
     Route: 048
     Dates: start: 20100616

REACTIONS (1)
  - BRAIN NEOPLASM [None]
